FAERS Safety Report 9756504 (Version 1)
Quarter: 2013Q4

REPORT INFORMATION
  Report Type: Spontaneous
  Country: US (occurrence: US)
  Receive Date: 20131213
  Receipt Date: 20131213
  Transmission Date: 20140711
  Serious: No
  Sender: FDA-Public Use
  Company Number: US-GLAXOSMITHKLINE-A1043635A

PATIENT
  Sex: Female

DRUGS (2)
  1. NICODERM CQ CLEAR 21MG [Suspect]
     Indication: EX-TOBACCO USER
     Route: 062
     Dates: start: 201309, end: 20130924
  2. ANTIHYPERTENSIVE [Concomitant]

REACTIONS (7)
  - Malaise [Recovered/Resolved]
  - Nausea [Recovered/Resolved]
  - Heart rate increased [Recovered/Resolved]
  - Abdominal discomfort [Recovered/Resolved]
  - Tremor [Recovered/Resolved]
  - Feeling jittery [Not Recovered/Not Resolved]
  - Tension [Not Recovered/Not Resolved]
